FAERS Safety Report 5025807-1 (Version None)
Quarter: 2006Q2

REPORT INFORMATION
  Report Type: 
  Country: None (occurrence: None)
  Receive Date: 20060614
  Receipt Date: 20060605
  Transmission Date: 20061013
  Serious: Yes (Hospitalization, Other)
  Sender: FDA-Public Use
  Company Number: US-JNJFOC-20060500668

PATIENT
  Age: 53 Year
  Sex: Female
  Weight: 81.65 kg

DRUGS (3)
  1. REMICADE [Suspect]
     Indication: CROHN'S DISEASE
  2. IMURAN [Suspect]
     Indication: CROHN'S DISEASE
  3. CIPRO [Concomitant]

REACTIONS (4)
  - DEMYELINATION [None]
  - PARALYSIS [None]
  - THROMBOCYTOPENIA [None]
  - VIRAL INFECTION [None]
